FAERS Safety Report 13947323 (Version 1)
Quarter: 2017Q3

REPORT INFORMATION
  Report Type: Spontaneous
  Country: AU (occurrence: AU)
  Receive Date: 20170908
  Receipt Date: 20170908
  Transmission Date: 20171128
  Serious: Yes (Other)
  Sender: FDA-Public Use
  Company Number: AU-ROCHE-1985818

PATIENT
  Sex: Male

DRUGS (1)
  1. VALIUM [Suspect]
     Active Substance: DIAZEPAM
     Indication: PRODUCT USED FOR UNKNOWN INDICATION
     Route: 065

REACTIONS (11)
  - Foaming at mouth [Unknown]
  - Malaise [Unknown]
  - Drug abuse [Unknown]
  - Suicide attempt [Unknown]
  - Sleep terror [Unknown]
  - Muscle twitching [Unknown]
  - Suicidal ideation [Unknown]
  - Depression [Unknown]
  - Delirium [Unknown]
  - Seizure [Unknown]
  - Psychotic disorder [Unknown]
